FAERS Safety Report 10392843 (Version 6)
Quarter: 2019Q1

REPORT INFORMATION
  Report Type: Spontaneous
  Country: NZ (occurrence: NZ)
  Receive Date: 20140819
  Receipt Date: 20190319
  Transmission Date: 20190417
  Serious: Yes (Disabling, Congenital Anomaly, Other)
  Sender: FDA-Public Use
  Company Number: NZ-ABBVIE-13X-118-1071304-00

PATIENT
  Sex: Female

DRUGS (1)
  1. EPILIM [Suspect]
     Active Substance: VALPROATE SODIUM
     Indication: MATERNAL EXPOSURE TIMING UNSPECIFIED
     Route: 064

REACTIONS (23)
  - Social problem [Unknown]
  - Abnormal behaviour [Unknown]
  - Tooth development disorder [Unknown]
  - Autism spectrum disorder [Not Recovered/Not Resolved]
  - Speech disorder [Unknown]
  - Obsessive-compulsive disorder [Unknown]
  - Functional gastrointestinal disorder [Unknown]
  - Motor developmental delay [Unknown]
  - Hypoacusis [Not Recovered/Not Resolved]
  - Coordination abnormal [Recovered/Resolved]
  - Anxiety [Unknown]
  - Speech disorder developmental [Unknown]
  - Language disorder [Unknown]
  - Arthropathy [Unknown]
  - Visual impairment [Not Recovered/Not Resolved]
  - Hypotonia [Recovered/Resolved]
  - Foetal anticonvulsant syndrome [Not Recovered/Not Resolved]
  - Foetal exposure during pregnancy [Unknown]
  - Cognitive disorder [Unknown]
  - Epilepsy [Unknown]
  - Learning disorder [Unknown]
  - Cardiac disorder [Unknown]
  - Attention deficit/hyperactivity disorder [Unknown]

NARRATIVE: CASE EVENT DATE: 2001
